FAERS Safety Report 24624344 (Version 1)
Quarter: 2024Q4

REPORT INFORMATION
  Report Type: Spontaneous
  Country: US (occurrence: None)
  Receive Date: 20241114
  Receipt Date: 20241114
  Transmission Date: 20250115
  Serious: Yes (Hospitalization)
  Sender: Public
  Company Number: None

PATIENT
  Sex: Male

DRUGS (9)
  1. TALTZ [Suspect]
     Active Substance: IXEKIZUMAB
     Indication: Psoriasis
     Dosage: ?FREQ: INJECT EIGHTY MILLIGRAMS BY SUBCUTANEOUS ROUTE EVERY FOUR WEEKS IN THE ABDOMEN, THIGH, OR UP
     Route: 058
     Dates: start: 20230203
  2. ACETAMINOPHE [Concomitant]
  3. ALBUTEROL [Concomitant]
  4. BENZONATATE [Concomitant]
     Active Substance: BENZONATATE
  5. CLARITIN [Concomitant]
     Active Substance: LORATADINE
  6. DOXYCYCLINE [Concomitant]
     Active Substance: DOXYCYCLINE
  7. PAXLOVID [Concomitant]
     Active Substance: NIRMATRELVIR\RITONAVIR
  8. PREDNISONE [Concomitant]
     Active Substance: PREDNISONE
  9. VTAMA [Concomitant]
     Active Substance: TAPINAROF

REACTIONS (2)
  - Dehydration [None]
  - Therapy interrupted [None]
